FAERS Safety Report 7573739-7 (Version None)
Quarter: 2011Q2

REPORT INFORMATION
  Report Type: 
  Country: None (occurrence: None)
  Receive Date: 20110627
  Receipt Date: 20110613
  Transmission Date: 20111010
  Serious: Yes (Death, Hospitalization)
  Sender: FDA-Public Use
  Company Number: JP-ROCHE-784030

PATIENT
  Age: 83 Year
  Sex: Female

DRUGS (5)
  1. AVASTIN [Suspect]
     Indication: LARGE INTESTINE CARCINOMA
     Dosage: FORM: INJECTION
     Route: 041
  2. FLUOROURACIL [Suspect]
     Dosage: INTRAVENOUS DRIP, FORM: INJECTION
     Route: 042
  3. LEUCOVORIN CALCIUM [Suspect]
     Indication: LARGE INTESTINE CARCINOMA
     Dosage: FORM: INJECTION
     Route: 041
  4. OXALIPLATIN [Suspect]
     Indication: LARGE INTESTINE CARCINOMA
     Route: 041
  5. FLUOROURACIL [Suspect]
     Indication: LARGE INTESTINE CARCINOMA
     Dosage: INTRAVENOUS BOLUS, FORM: INJECTION
     Route: 042

REACTIONS (2)
  - DECREASED APPETITE [None]
  - DISEASE PROGRESSION [None]
